FAERS Safety Report 4696660-0 (Version None)
Quarter: 2005Q2

REPORT INFORMATION
  Report Type: 
  Country: None (occurrence: None)
  Receive Date: 20050620
  Receipt Date: 20050304
  Transmission Date: 20051028
  Serious: No
  Sender: FDA-Public Use
  Company Number: US-YAMANOUCHI-YPA20050119

PATIENT
  Age: 81 Year

DRUGS (1)
  1. VESICARE [Suspect]
     Indication: HYPERTONIC BLADDER
     Dosage: MG PO
     Route: 048
     Dates: start: 20050201

REACTIONS (1)
  - POLLAKIURIA [None]
